FAERS Safety Report 17614987 (Version 1)
Quarter: 2020Q2

REPORT INFORMATION
  Report Type: Report from Study
  Country: US (occurrence: US)
  Receive Date: 20200402
  Receipt Date: 20200402
  Transmission Date: 20200713
  Serious: Yes (Other)
  Sender: FDA-Public Use
  Company Number: US-EMD SERONO-9151910

PATIENT
  Age: 31 Year
  Sex: Female

DRUGS (1)
  1. MAVENCLAD [Suspect]
     Active Substance: CLADRIBINE
     Indication: MULTIPLE SCLEROSIS
     Dosage: MONTH ONE THERAPY.
     Route: 048
     Dates: start: 20200214, end: 20200218

REACTIONS (3)
  - Nephrolithiasis [Unknown]
  - Cardiac arrest [Unknown]
  - Syncope [Unknown]

NARRATIVE: CASE EVENT DATE: 20200308
